FAERS Safety Report 8033063-5 (Version None)
Quarter: 2012Q1

REPORT INFORMATION
  Report Type: 
  Country: None (occurrence: None)
  Receive Date: 20120110
  Receipt Date: 20120105
  Transmission Date: 20120608
  Serious: Yes (Hospitalization)
  Sender: FDA-Public Use
  Company Number: FR-PFIZER INC-2012002922

PATIENT
  Age: 83 Year
  Sex: Female

DRUGS (8)
  1. BISOPROLOL FUMARATE [Concomitant]
     Dosage: 1 DF, 2X/DAY
  2. MACROGOL [Concomitant]
     Dosage: 5.9 G, 1X/DAY
  3. ZOLPIDEM [Concomitant]
     Dosage: 5 MG, 1X/DAY
  4. DEDROGYL [Concomitant]
     Dosage: 10 GTT, 1X/DAY
  5. RANITIDINE HCL [Suspect]
     Dosage: 2 DF, SINGLE
     Route: 042
     Dates: start: 20110901, end: 20110901
  6. ENALAPRIL MALEATE [Concomitant]
     Dosage: 1 DF, 1X/DAY
  7. OXAZEPAM [Concomitant]
     Dosage: 10 MG, 3X/DAY
  8. PIPERACILLIN AND TAZOBACTAM [Suspect]
     Indication: INFECTION
     Dosage: 4 G, 3X/DAY
     Dates: start: 20110901, end: 20110907

REACTIONS (2)
  - DELIRIUM [None]
  - HALLUCINATION [None]
